FAERS Safety Report 23848846 (Version 2)
Quarter: 2024Q3

REPORT INFORMATION
  Report Type: Spontaneous
  Country: US (occurrence: US)
  Receive Date: 20240513
  Receipt Date: 20240702
  Transmission Date: 20241017
  Serious: Yes (Hospitalization, Other)
  Sender: Vantive US Healthcare
  Company Number: US-VANTIVE-2024VAN016776

PATIENT
  Age: 62 Year
  Sex: Male
  Weight: 111 kg

DRUGS (2)
  1. EXTRANEAL [Suspect]
     Active Substance: CALCIUM CHLORIDE\ICODEXTRIN\MAGNESIUM CHLORIDE\SODIUM CHLORIDE\SODIUM LACTATE
     Dosage: SINGLE DAILY EXCHANGE WITH DWELL TIME OF 14 HOURS
     Route: 033
     Dates: start: 20240427
  2. GAS-X [Concomitant]
     Active Substance: DIMETHICONE
     Dosage: 4-5 TIMES A WEEKS
     Route: 065

REACTIONS (6)
  - Pancreatitis [Unknown]
  - Abdominal pain [Unknown]
  - Nausea [Unknown]
  - Abdominal distension [Unknown]
  - Therapy interrupted [Unknown]
  - Condition aggravated [Unknown]

NARRATIVE: CASE EVENT DATE: 20240428
